FAERS Safety Report 4381075-5 (Version None)
Quarter: 2004Q2

REPORT INFORMATION
  Report Type: 
  Country: None (occurrence: None)
  Receive Date: 20040601
  Receipt Date: 20040203
  Transmission Date: 20050107
  Serious: No
  Sender: FDA-Public Use
  Company Number: FABR-10463

PATIENT
  Age: 33 Year
  Sex: Male
  Weight: 88 kg

DRUGS (8)
  1. FABRAZYME [Suspect]
     Indication: FABRY'S DISEASE
     Dosage: 105 MG Q2WKS IV
     Route: 042
     Dates: start: 20030703
  2. PROGRAF [Concomitant]
  3. CELLCEPT [Concomitant]
  4. CENTIRIZINE [Concomitant]
  5. NORVASC [Concomitant]
  6. LOTENSIN [Concomitant]
  7. PREVACID [Concomitant]
  8. BENADRYL [Concomitant]

REACTIONS (1)
  - PAIN [None]
